FAERS Safety Report 9413179 (Version 1)
Quarter: 2013Q2

REPORT INFORMATION
  Report Type: Spontaneous
  Country: ZA (occurrence: ZA)
  Receive Date: 20130520
  Receipt Date: 20130520
  Transmission Date: 20140414
  Serious: Yes (Other)
  Sender: FDA-Public Use
  Company Number: AUR-APL-2013-03399

PATIENT
  Sex: 0

DRUGS (5)
  1. LAMIVUDINE [Suspect]
  2. ZIDOVUDINE (ZIDOVUDINE) [Suspect]
  3. EFAVIRENZ [Suspect]
  4. ISONIAZID [Suspect]
  5. TRIMETHOPRIM SULFAMETHOXAZOLE (BACTRIM) [Concomitant]

REACTIONS (7)
  - Decreased appetite [None]
  - Malaise [None]
  - Cough [None]
  - Vomiting [None]
  - Diarrhoea [None]
  - Pyrexia [None]
  - Alanine aminotransferase increased [None]
